FAERS Safety Report 7704904-3 (Version None)
Quarter: 2011Q3

REPORT INFORMATION
  Report Type: 
  Country: None (occurrence: None)
  Receive Date: 20110823
  Receipt Date: 20110819
  Transmission Date: 20111222
  Serious: No
  Sender: FDA-Public Use
  Company Number: US-PFIZER INC-2011173587

PATIENT
  Sex: Female
  Weight: 45 kg

DRUGS (7)
  1. CALCIUM [Concomitant]
     Dosage: 1500 MG, 1X/DAY
  2. LIPITOR [Suspect]
     Indication: BLOOD CHOLESTEROL INCREASED
     Dosage: 40 MG, 1X/DAY
     Route: 048
  3. BIOTIN [Concomitant]
     Dosage: 2500 UG, UNK
  4. ALDACTONE [Concomitant]
     Dosage: UNK
  5. MULTI-VITAMINS [Suspect]
     Dosage: UNKNOWN
  6. ZOCOR [Suspect]
     Dosage: UNK
  7. VITAMIN D [Concomitant]
     Dosage: 2000 MG, 1X/DAY

REACTIONS (1)
  - ALOPECIA [None]
